FAERS Safety Report 7986789-3 (Version None)
Quarter: 2011Q4

REPORT INFORMATION
  Report Type: 
  Country: None (occurrence: None)
  Receive Date: 20111216
  Receipt Date: 20110822
  Transmission Date: 20120403
  Serious: Yes (Other)
  Sender: FDA-Public Use
  Company Number: US-BRISTOL-MYERS SQUIBB COMPANY-15988207

PATIENT
  Age: 49 Year
  Sex: Female

DRUGS (1)
  1. ABILIFY [Suspect]
     Dosage: FOR 3 DAYS,RECEIVED FIRST DOSE

REACTIONS (6)
  - FATIGUE [None]
  - DEPRESSION [None]
  - PAIN [None]
  - HEADACHE [None]
  - INSOMNIA [None]
  - INFLUENZA LIKE ILLNESS [None]
